FAERS Safety Report 5118543-4 (Version None)
Quarter: 2006Q4

REPORT INFORMATION
  Report Type: 
  Country: None (occurrence: None)
  Receive Date: 20061002
  Receipt Date: 20060815
  Transmission Date: 20070319
  Serious: Yes (Death, Other)
  Sender: FDA-Public Use
  Company Number: PL-AMGEN-UK190518

PATIENT
  Age: 64 Year
  Sex: Female

DRUGS (6)
  1. NEUPOGEN [Suspect]
     Indication: CHEMOTHERAPY
     Route: 065
     Dates: start: 20040622, end: 20040822
  2. IMATINIB MESYLATE [Concomitant]
     Route: 065
     Dates: start: 20040315, end: 20040612
  3. CYTARABINE [Concomitant]
     Route: 065
  4. HYDROXYUREA [Concomitant]
     Route: 065
  5. ALLOPURINOL [Concomitant]
     Route: 065
  6. FUROSEMIDE [Concomitant]
     Route: 065

REACTIONS (4)
  - APLASIA [None]
  - DRUG INEFFECTIVE [None]
  - PYREXIA [None]
  - SEPTIC SHOCK [None]
